FAERS Safety Report 19424174 (Version 1)
Quarter: 2021Q2

REPORT INFORMATION
  Report Type: Spontaneous
  Country: US (occurrence: US)
  Receive Date: 20210616
  Receipt Date: 20210616
  Transmission Date: 20210717
  Serious: No
  Sender: FDA-Public Use
  Company Number: US-TEVA-2021-US-1921484

PATIENT
  Sex: Male

DRUGS (1)
  1. NEFAZODONE HYDROCHLORIDE. [Suspect]
     Active Substance: NEFAZODONE HYDROCHLORIDE
     Dosage: 2005 AND IN 2008 OR 2010
     Route: 065
     Dates: start: 2005

REACTIONS (1)
  - Panic attack [Recovered/Resolved]
